FAERS Safety Report 24829402 (Version 1)
Quarter: 2025Q1

REPORT INFORMATION
  Report Type: Spontaneous
  Country: US (occurrence: US)
  Receive Date: 20250110
  Receipt Date: 20250110
  Transmission Date: 20250409
  Serious: No
  Sender: SANDOZ
  Company Number: US-SANDOZ-SDZ2025US000441

PATIENT

DRUGS (1)
  1. CIMERLI [Suspect]
     Active Substance: RANIBIZUMAB-EQRN
     Indication: Product used for unknown indication
     Dates: start: 20250103

REACTIONS (1)
  - Circumstance or information capable of leading to device use error [Unknown]

NARRATIVE: CASE EVENT DATE: 20250103
